FAERS Safety Report 9201440 (Version 2)
Quarter: 2013Q2

REPORT INFORMATION
  Report Type: Spontaneous
  Country: US (occurrence: US)
  Receive Date: 20130401
  Receipt Date: 20130614
  Transmission Date: 20140414
  Serious: Yes (Other)
  Sender: FDA-Public Use
  Company Number: US-SANOFI-AVENTIS-2013SA002634

PATIENT
  Age: 42 Year
  Sex: Female

DRUGS (4)
  1. AUBAGIO [Suspect]
     Indication: MULTIPLE SCLEROSIS
     Route: 048
     Dates: start: 20121216, end: 201301
  2. AUBAGIO [Suspect]
     Indication: MULTIPLE SCLEROSIS
     Route: 048
     Dates: start: 20121216, end: 201301
  3. AUBAGIO [Suspect]
     Indication: MULTIPLE SCLEROSIS
     Route: 048
     Dates: start: 201301, end: 20130213
  4. AUBAGIO [Suspect]
     Indication: MULTIPLE SCLEROSIS
     Route: 048
     Dates: start: 201302

REACTIONS (7)
  - Urinary retention [Unknown]
  - Liver function test abnormal [Unknown]
  - Diarrhoea [Recovering/Resolving]
  - Frequent bowel movements [Recovering/Resolving]
  - Paraesthesia [Unknown]
  - Paraesthesia [Not Recovered/Not Resolved]
  - Alopecia [Not Recovered/Not Resolved]
